FAERS Safety Report 24447015 (Version 1)
Quarter: 2024Q4

REPORT INFORMATION
  Report Type: Spontaneous
  Country: FR (occurrence: FR)
  Receive Date: 20241016
  Receipt Date: 20241016
  Transmission Date: 20250115
  Serious: Yes (Life-Threatening)
  Sender: BOEHRINGER INGELHEIM
  Company Number: FR-BoehringerIngelheim-2024-BI-056844

PATIENT
  Age: 52 Year
  Sex: Male

DRUGS (1)
  1. PERSANTINE [Suspect]
     Active Substance: DIPYRIDAMOLE
     Indication: Exercise test
     Dosage: 0.56 MG/KG 1 DOSAGE FORM??SOLUTION INJECTABLE, AMPOULE, DIPYRIDAMOLE
     Dates: start: 20240916, end: 20240916

REACTIONS (2)
  - Anaphylactic shock [Recovering/Resolving]
  - Respiratory arrest [Recovering/Resolving]

NARRATIVE: CASE EVENT DATE: 20240916
